FAERS Safety Report 5249109-3 (Version None)
Quarter: 2007Q1

REPORT INFORMATION
  Report Type: 
  Country: None (occurrence: None)
  Receive Date: 20070228
  Receipt Date: 20060810
  Transmission Date: 20070707
  Serious: No
  Sender: FDA-Public Use
  Company Number: US-GLAXOSMITHKLINE-A0616354A

PATIENT
  Sex: Female

DRUGS (4)
  1. VALTREX [Suspect]
     Indication: DRUG USE FOR UNKNOWN INDICATION
     Route: 048
  2. ZOCOR [Concomitant]
     Dates: start: 20060101
  3. ZOLOFT [Concomitant]
     Dates: start: 20060101
  4. JASMINE [Concomitant]
     Dates: start: 20060101

REACTIONS (1)
  - HERPES VIRUS INFECTION [None]
